FAERS Safety Report 12587393 (Version 2)
Quarter: 2016Q3

REPORT INFORMATION
  Report Type: Spontaneous
  Country: JP (occurrence: JP)
  Receive Date: 20160725
  Receipt Date: 20160831
  Transmission Date: 20161109
  Serious: Yes (Other)
  Sender: FDA-Public Use
  Company Number: JP-ASTELLAS-2016JP010636

PATIENT
  Age: 73 Year
  Sex: Male

DRUGS (5)
  1. CICLOSPORIN [Concomitant]
     Active Substance: CYCLOSPORINE
     Indication: APLASIA PURE RED CELL
     Dosage: UNK UNK, UNKNOWN FREQ.
     Route: 048
  2. PROGRAF [Suspect]
     Active Substance: TACROLIMUS\TACROLIMUS ANHYDROUS
     Indication: APLASIA PURE RED CELL
     Route: 048
  3. RED CELLS CONCENTRATES-LEUKOCYTES REDUCED [Concomitant]
     Route: 065
  4. RED CELLS CONCENTRATES-LEUKOCYTES REDUCED [Concomitant]
     Indication: ANAEMIA
     Route: 065
  5. PROGRAF [Suspect]
     Active Substance: TACROLIMUS\TACROLIMUS ANHYDROUS
     Route: 048

REACTIONS (3)
  - Azotaemia [Unknown]
  - Renal impairment [Unknown]
  - Off label use [Unknown]
